FAERS Safety Report 22999881 (Version 2)
Quarter: 2024Q2

REPORT INFORMATION
  Report Type: Report from Study
  Country: CA (occurrence: CA)
  Receive Date: 20230928
  Receipt Date: 20240416
  Transmission Date: 20240716
  Serious: Yes (Other)
  Sender: FDA-Public Use
  Company Number: CA-MYLANLABS-2022M1110850

PATIENT

DRUGS (3)
  1. HULIO [Suspect]
     Active Substance: ADALIMUMAB-FKJP
     Indication: Psoriatic arthropathy
     Dosage: 40 MILLIGRAM (14) BIWEEKLY
     Route: 058
     Dates: start: 20220714
  2. AVANAFIL [Concomitant]
     Active Substance: AVANAFIL
     Indication: Blood pressure measurement
     Dosage: 2.5 MILLIGRAM
     Route: 065
  3. ESCITALOPRAM [Concomitant]
     Active Substance: ESCITALOPRAM OXALATE
     Indication: Anxiety
     Dosage: 10 MILLIGRAM, QD
     Route: 065

REACTIONS (3)
  - Immunodeficiency [Unknown]
  - Product dose omission issue [Unknown]
  - Product supply issue [Unknown]
